FAERS Safety Report 15286165 (Version 1)
Quarter: 2018Q3

REPORT INFORMATION
  Report Type: Spontaneous
  Country: US (occurrence: US)
  Receive Date: 20180816
  Receipt Date: 20180816
  Transmission Date: 20181010
  Serious: No
  Sender: FDA-Public Use
  Company Number: US-ASTRAZENECA-2018SF02749

PATIENT
  Age: 76 Year
  Sex: Female

DRUGS (1)
  1. SEROQUEL [Suspect]
     Active Substance: QUETIAPINE FUMARATE
     Indication: PRODUCT USED FOR UNKNOWN INDICATION
     Dosage: 50 MG IN MORNING 50 MG AT NOON AND 100 MG AT NIGHT
     Route: 048

REACTIONS (3)
  - Prescribed underdose [Unknown]
  - Drug prescribing error [Unknown]
  - Confusional state [Unknown]

NARRATIVE: CASE EVENT DATE: 2018
